FAERS Safety Report 17003714 (Version 2)
Quarter: 2020Q2

REPORT INFORMATION
  Report Type: Spontaneous
  Country: PT (occurrence: PT)
  Receive Date: 20191107
  Receipt Date: 20200420
  Transmission Date: 20200713
  Serious: Yes (Hospitalization, Other)
  Sender: FDA-Public Use
  Company Number: PT-GLAXOSMITHKLINE-PT2019GSK199462

PATIENT
  Age: 50 Year
  Sex: Male

DRUGS (6)
  1. VALPROIC ACID. [Suspect]
     Active Substance: VALPROIC ACID
     Indication: PRODUCT USED FOR UNKNOWN INDICATION
     Dosage: UNK
  2. LAMOTRIGINE. [Suspect]
     Active Substance: LAMOTRIGINE
     Indication: EPILEPSY
     Dosage: 25 MG (DAY)
  3. LAMOTRIGINE. [Suspect]
     Active Substance: LAMOTRIGINE
     Dosage: 50 MG (TWO WEEKS LATER)
  4. ESOMEPRAZOLE. [Concomitant]
     Active Substance: ESOMEPRAZOLE MAGNESIUM
     Indication: PRODUCT USED FOR UNKNOWN INDICATION
     Dosage: UNK
  5. SIMVASTATIN. [Concomitant]
     Active Substance: SIMVASTATIN
     Indication: PRODUCT USED FOR UNKNOWN INDICATION
     Dosage: UNK
  6. ESCITALOPRAM [Concomitant]
     Active Substance: ESCITALOPRAM OXALATE
     Indication: PRODUCT USED FOR UNKNOWN INDICATION

REACTIONS (20)
  - Drug reaction with eosinophilia and systemic symptoms [Recovered/Resolved]
  - Red blood cell sedimentation rate increased [Recovered/Resolved]
  - Alanine aminotransferase increased [Recovered/Resolved]
  - Hepatocellular injury [Recovered/Resolved]
  - Rash maculo-papular [Recovered/Resolved]
  - Leukocytosis [Recovered/Resolved]
  - Aspartate aminotransferase increased [Recovered/Resolved]
  - Pyrexia [Recovered/Resolved]
  - Face oedema [Recovered/Resolved]
  - Lymphadenopathy [Recovered/Resolved]
  - Disease recurrence [Recovered/Resolved]
  - C-reactive protein increased [Recovered/Resolved]
  - Rash pruritic [Recovered/Resolved]
  - Eosinophilia [Recovered/Resolved]
  - Oedema peripheral [Recovered/Resolved]
  - Inflammatory marker increased [Recovered/Resolved]
  - Blood lactate dehydrogenase increased [Recovered/Resolved]
  - Toxic skin eruption [Recovered/Resolved]
  - Dermatitis exfoliative generalised [Recovered/Resolved]
  - Lymphocytic infiltration [Recovered/Resolved]
